FAERS Safety Report 11318894 (Version 2)
Quarter: 2015Q3

REPORT INFORMATION
  Report Type: Spontaneous
  Country: US (occurrence: US)
  Receive Date: 20150729
  Receipt Date: 20150914
  Transmission Date: 20151125
  Serious: No
  Sender: FDA-Public Use
  Company Number: US-ACTELION PHARMACEUTICALS US, INC.-A-NJ2015-114368

PATIENT
  Age: 73 Year
  Sex: Male

DRUGS (8)
  1. VENTAVIS [Suspect]
     Active Substance: ILOPROST
     Dosage: 5 MCG, TID
     Route: 055
     Dates: start: 20150312
  2. OPSUMIT [Suspect]
     Active Substance: MACITENTAN
     Indication: PULMONARY ARTERIAL HYPERTENSION
     Dosage: 10 MG, QD
     Route: 048
     Dates: start: 20141121
  3. ASPIRIN. [Concomitant]
     Active Substance: ASPIRIN
  4. ADCIRCA [Concomitant]
     Active Substance: TADALAFIL
  5. VENTAVIS [Suspect]
     Active Substance: ILOPROST
     Dosage: 5 MCG, 6-9XDAY
     Route: 055
  6. VENTAVIS [Suspect]
     Active Substance: ILOPROST
     Dosage: 5 MCG, 6-8 INH/DAY
     Route: 055
     Dates: start: 20150225
  7. VENTAVIS [Suspect]
     Active Substance: ILOPROST
     Indication: PULMONARY ARTERIAL HYPERTENSION
     Dosage: 2.5 MCG, 6-9XDAY
     Route: 055
     Dates: start: 20150225
  8. OXYGEN. [Concomitant]
     Active Substance: OXYGEN

REACTIONS (19)
  - Flushing [Unknown]
  - Asthenia [Unknown]
  - Somnolence [Unknown]
  - Laceration [Unknown]
  - Tremor [Unknown]
  - Cough [Unknown]
  - Chest discomfort [Unknown]
  - Headache [Unknown]
  - Oxygen saturation decreased [Unknown]
  - Chills [Recovered/Resolved]
  - Heart rate increased [Unknown]
  - Fatigue [Unknown]
  - Dyspnoea [Unknown]
  - Blood glucose increased [Unknown]
  - Muscular weakness [Unknown]
  - Feeling abnormal [Unknown]
  - Anxiety [Unknown]
  - Peripheral swelling [Unknown]
  - Hypertension [Unknown]

NARRATIVE: CASE EVENT DATE: 20150302
